FAERS Safety Report 24877273 (Version 1)
Quarter: 2025Q1

REPORT INFORMATION
  Report Type: Spontaneous
  Country: CN (occurrence: CN)
  Receive Date: 20250123
  Receipt Date: 20250123
  Transmission Date: 20250409
  Serious: Yes (Other)
  Sender: ALKEM
  Company Number: CN-ALKEM LABORATORIES LIMITED-CN-ALKEM-2024-05146

PATIENT
  Age: 8 Decade

DRUGS (5)
  1. MORPHINE SULFATE [Suspect]
     Active Substance: MORPHINE SULFATE
     Indication: Cancer pain
     Route: 065
  2. MORPHINE SULFATE [Suspect]
     Active Substance: MORPHINE SULFATE
     Route: 065
  3. OXYCODONE HYDROCHLORIDE [Suspect]
     Active Substance: OXYCODONE HYDROCHLORIDE
     Indication: Cancer pain
     Dosage: 120 MILLIGRAM, BID (LOW DOSE CONTINUOUS INFUSION) SUSTAINED RELEASE TABLET
     Route: 037
  4. Cefuroine [Concomitant]
     Indication: Pneumonia
     Route: 065
  5. CEFOPERAZONE [Concomitant]
     Active Substance: CEFOPERAZONE
     Indication: Pyrexia
     Route: 065

REACTIONS (3)
  - Urinary retention [Recovered/Resolved]
  - Vomiting [Recovered/Resolved]
  - Therapy non-responder [Unknown]
